FAERS Safety Report 10383833 (Version 1)
Quarter: 2014Q1

REPORT INFORMATION
  Report Type: Spontaneous
  Country: US (occurrence: None)
  Receive Date: 20140306
  Receipt Date: 20140306
  Transmission Date: 20141002
  Serious: Yes (Other)
  Sender: FDA-Public Use
  Company Number: 163-21880-13113317

PATIENT
  Age: 82 Year
  Sex: Female

DRUGS (2)
  1. REVLIMID (LENALIDOMIDE)(10 MILLIGRAM, CAPSULES) [Suspect]
     Indication: MYELODYSPLASTIC SYNDROME
     Dosage: 21 IN 28 D, PO
     Route: 048
     Dates: start: 20131027, end: 20131118
  2. BLOOD TRANSFUSION(BLOOD TRANSFUSION, AUXILIARY PRODUCTS)(INJECTION) [Concomitant]
     Dosage: 21 IN 28 D, PO

REACTIONS (1)
  - Red blood cell count decreased [None]
